FAERS Safety Report 17093245 (Version 1)
Quarter: 2019Q4

REPORT INFORMATION
  Report Type: Spontaneous
  Country: US (occurrence: US)
  Receive Date: 20191129
  Receipt Date: 20191129
  Transmission Date: 20200122
  Serious: No
  Sender: FDA-Public Use
  Company Number: US-TEVA-2019-US-1143801

PATIENT

DRUGS (1)
  1. OCTREOTIDE ACETATE. [Suspect]
     Active Substance: OCTREOTIDE ACETATE
     Dosage: 200 UG IN 1 ML
     Route: 065

REACTIONS (2)
  - Weight decreased [Unknown]
  - Injection site extravasation [Unknown]
